FAERS Safety Report 7678779-5 (Version None)
Quarter: 2011Q3

REPORT INFORMATION
  Report Type: 
  Country: None (occurrence: None)
  Receive Date: 20110811
  Receipt Date: 20110803
  Transmission Date: 20111222
  Serious: Yes (Other)
  Sender: FDA-Public Use
  Company Number: US-RB-025396-11

PATIENT
  Age: 56 Year
  Sex: Male

DRUGS (2)
  1. SUBOXONE [Suspect]
     Indication: DRUG DEPENDENCE
     Dosage: SUBLINGUAL FILM / 8 - 16 MG DAILY
     Route: 060
     Dates: start: 20110401
  2. BENICAR [Suspect]
     Indication: HYPERTENSION
     Dosage: UNKNOWN DOSING INFORMATION
     Route: 048
     Dates: end: 20110601

REACTIONS (12)
  - DEPRESSION [None]
  - DIZZINESS [None]
  - NERVOUSNESS [None]
  - LOSS OF CONSCIOUSNESS [None]
  - INSOMNIA [None]
  - CHEST PAIN [None]
  - HYPOTENSION [None]
  - ASTHENIA [None]
  - ROAD TRAFFIC ACCIDENT [None]
  - PAIN [None]
  - WEIGHT DECREASED [None]
  - OFF LABEL USE [None]
